FAERS Safety Report 5857856-5 (Version None)
Quarter: 2008Q3

REPORT INFORMATION
  Report Type: 
  Country: None (occurrence: None)
  Receive Date: 20080818
  Receipt Date: 20080609
  Transmission Date: 20090109
  Serious: No
  Sender: FDA-Public Use
  Company Number: WAES 0806USA01501

PATIENT
  Age: 65 Year
  Sex: Male

DRUGS (13)
  1. JANUVIA [Suspect]
     Indication: TYPE 2 DIABETES MELLITUS
     Dosage: 100 MG/DAILY/PO
     Route: 048
     Dates: start: 20080606
  2. COUMADIN [Concomitant]
  3. COZAAR [Concomitant]
  4. CRESTOR [Concomitant]
  5. HUMULIN [Concomitant]
  6. K-DUR [Concomitant]
  7. LANTUS [Concomitant]
  8. LOPRESSOR [Concomitant]
  9. PLAVIX [Concomitant]
  10. TEKTURNA [Concomitant]
  11. ZESTRIL [Concomitant]
  12. CYANOCOBALAMIN [Concomitant]
  13. OMEGA-3 MARINE TRIGLYCERIDES [Concomitant]

REACTIONS (1)
  - HEADACHE [None]
